FAERS Safety Report 10970025 (Version 1)
Quarter: 2015Q1

REPORT INFORMATION
  Report Type: Spontaneous
  Country: US (occurrence: None)
  Receive Date: 20150327
  Receipt Date: 20150327
  Transmission Date: 20150721
  Serious: Yes (Death)
  Sender: FDA-Public Use
  Company Number: FK201501382

PATIENT
  Age: 73 Year
  Sex: Female

DRUGS (4)
  1. VALPROATE SODIUM. [Suspect]
     Active Substance: VALPROATE SODIUM
     Indication: EPILEPSY
  2. TRILEPTAL [Suspect]
     Active Substance: OXCARBAZEPINE
     Indication: EPILEPSY
     Dates: start: 20150206
  3. PHENOBARBITAL (PHENOBARBITAL) [Suspect]
     Active Substance: PHENOBARBITAL
     Indication: PRODUCT USED FOR UNKNOWN INDICATION
     Dates: start: 20150206
  4. VIMPAT [Suspect]
     Active Substance: LACOSAMIDE
     Indication: EPILEPSY
     Dosage: LOADING DOSE
     Route: 042
     Dates: start: 20150104

REACTIONS (13)
  - Multi-organ failure [None]
  - Haemorrhage intracranial [None]
  - Acute myocardial infarction [None]
  - Transient ischaemic attack [None]
  - Atrioventricular block first degree [None]
  - Rash [None]
  - Unresponsive to stimuli [None]
  - Fall [None]
  - Electroencephalogram abnormal [None]
  - Hypersensitivity [None]
  - Seizure [None]
  - Liver function test abnormal [None]
  - Cardio-respiratory arrest [None]
